FAERS Safety Report 10460847 (Version 1)
Quarter: 2014Q3

REPORT INFORMATION
  Report Type: Spontaneous
  Country: DE (occurrence: DE)
  Receive Date: 20140918
  Receipt Date: 20140918
  Transmission Date: 20150326
  Serious: Yes (Death, Other)
  Sender: FDA-Public Use
  Company Number: DE-ACCORD-025905

PATIENT
  Age: 41 Year
  Sex: Female

DRUGS (2)
  1. PACLITAXEL/PACLITAXEL LIPOSOME [Suspect]
     Active Substance: PACLITAXEL
     Indication: CERVIX CARCINOMA
     Dosage: DAILY DOSE OF 80 MG/M2 / 3?BOUTS OF CHEMOTHERAPY,?D1+8+15 Q21D?AT 18- 26.6 GESTATIONAL WEEK
     Route: 041
  2. CISPLATIN. [Suspect]
     Active Substance: CISPLATIN
     Indication: CERVIX CARCINOMA
     Dosage: DAILY DOSE OF 75 MG/M2 / 3 BOUTS OF CHEMOTHERAPY,?D1 Q21D (EVERY 21 DAYS),?18-26.6 GESTATIONAL WEE
     Route: 041

REACTIONS (3)
  - Exposure during pregnancy [Unknown]
  - Foetal death [Fatal]
  - Maternal death affecting foetus [Fatal]
